FAERS Safety Report 6310509-1 (Version None)
Quarter: 2009Q3

REPORT INFORMATION
  Report Type: 
  Country: None (occurrence: None)
  Receive Date: 20090811
  Receipt Date: 20090722
  Transmission Date: 20100115
  Serious: Yes (Hospitalization)
  Sender: FDA-Public Use
  Company Number: 1000006858

PATIENT
  Age: 53 Year
  Sex: Female

DRUGS (8)
  1. SAVELLA [Suspect]
     Indication: FIBROMYALGIA
     Dosage: 12.5 MG (12.5 MG, 1 IN 1 D),ORAL : 25 MG (12.5 MG, 2 IN 1 D),ORAL
     Route: 048
     Dates: start: 20090615, end: 20090615
  2. SAVELLA [Suspect]
     Indication: FIBROMYALGIA
     Dosage: 12.5 MG (12.5 MG, 1 IN 1 D),ORAL : 25 MG (12.5 MG, 2 IN 1 D),ORAL
     Route: 048
     Dates: start: 20090616, end: 20090616
  3. CHANTIX [Concomitant]
  4. AMITRIPTYLINE [Concomitant]
  5. PERCOCET [Concomitant]
  6. NORVASC [Concomitant]
  7. WELLBUTRIN XL [Concomitant]
  8. CLONAZEPAM [Concomitant]

REACTIONS (1)
  - SEROTONIN SYNDROME [None]
